FAERS Safety Report 9705723 (Version 1)
Quarter: 2013Q4

REPORT INFORMATION
  Report Type: Spontaneous
  Country: US (occurrence: US)
  Receive Date: 20131122
  Receipt Date: 20131122
  Transmission Date: 20140711
  Serious: No
  Sender: FDA-Public Use
  Company Number: US-GILEAD-2008-0017847

PATIENT
  Sex: Female

DRUGS (10)
  1. LETAIRIS [Suspect]
     Indication: PULMONARY ARTERIAL HYPERTENSION
     Route: 048
     Dates: start: 20080804, end: 20080818
  2. ALPRAZOLAM [Concomitant]
     Route: 048
  3. ASA [Concomitant]
     Route: 048
  4. CARDIZEM [Concomitant]
     Route: 048
  5. COMBIVENT [Concomitant]
     Route: 055
  6. GABAPENTIN [Concomitant]
     Route: 048
  7. NEXIUM [Concomitant]
     Route: 048
  8. METOPROLOL [Concomitant]
     Route: 048
  9. LOVASTATIN [Concomitant]
     Route: 048
  10. LEXAPRO [Concomitant]
     Route: 048

REACTIONS (3)
  - Dyspnoea [Recovered/Resolved]
  - Joint swelling [Recovered/Resolved]
  - Flushing [Recovered/Resolved]
